FAERS Safety Report 10161141 (Version 1)
Quarter: 2014Q2

REPORT INFORMATION
  Report Type: Spontaneous
  Country: US (occurrence: US)
  Receive Date: 20140508
  Receipt Date: 20140508
  Transmission Date: 20141212
  Serious: No
  Sender: FDA-Public Use
  Company Number: US-PFIZER INC-2014125539

PATIENT
  Age: 72 Year
  Sex: Female
  Weight: 92.97 kg

DRUGS (2)
  1. LYRICA [Suspect]
     Indication: NEUROPATHY PERIPHERAL
     Dosage: 50 MG, 3X/DAY
     Dates: start: 20140430, end: 20140504
  2. IBUPROFEN [Concomitant]
     Indication: NEUROPATHY PERIPHERAL
     Dosage: 800 MG, DAILY

REACTIONS (4)
  - Dry mouth [Recovered/Resolved]
  - Dyspnoea [Recovered/Resolved]
  - Feeling drunk [Recovered/Resolved]
  - Insomnia [Recovered/Resolved]
